FAERS Safety Report 11831890 (Version 1)
Quarter: 2015Q4

REPORT INFORMATION
  Report Type: Spontaneous
  Country: US (occurrence: None)
  Receive Date: 20151211
  Receipt Date: 20151211
  Transmission Date: 20160305
  Serious: Yes (Disabling, Other)
  Sender: FDA-Public Use
  Company Number: None

PATIENT
  Age: 65 Year
  Sex: Male
  Weight: 90.72 kg

DRUGS (3)
  1. CIPROFLOXACIN. [Suspect]
     Active Substance: CIPROFLOXACIN
     Indication: PROSTATITIS
     Dosage: 1 PILL/500MG EACH
     Route: 048
     Dates: start: 20151028, end: 20151126
  2. LISINOPRIL HTCZ [Concomitant]
  3. TAMOSULIN [Concomitant]

REACTIONS (2)
  - Tendon pain [None]
  - Abasia [None]

NARRATIVE: CASE EVENT DATE: 20151124
